FAERS Safety Report 5779454-4 (Version None)
Quarter: 2008Q2

REPORT INFORMATION
  Report Type: 
  Country: None (occurrence: None)
  Receive Date: 20080619
  Receipt Date: 20071108
  Transmission Date: 20081010
  Serious: No
  Sender: FDA-Public Use
  Company Number: US-ASTRAZENECA-2007UW25942

PATIENT
  Age: 87 Year
  Sex: Female
  Weight: 60.5 kg

DRUGS (3)
  1. ATACAND [Suspect]
     Indication: PHAEOCHROMOCYTOMA
     Route: 048
     Dates: start: 20060901
  2. LABETALOL HCL [Suspect]
     Indication: PHAEOCHROMOCYTOMA
     Route: 048
     Dates: start: 20060901, end: 20071001
  3. LABETALOL HCL [Suspect]
     Route: 048
     Dates: start: 20071022

REACTIONS (9)
  - ARTHRALGIA [None]
  - ASTHENIA [None]
  - DIARRHOEA [None]
  - DIZZINESS [None]
  - DRUG INEFFECTIVE [None]
  - FATIGUE [None]
  - FEELING ABNORMAL [None]
  - GASTRIC HYPERMOTILITY [None]
  - HYPOTENSION [None]
